FAERS Safety Report 12899837 (Version 2)
Quarter: 2016Q4

REPORT INFORMATION
  Report Type: Spontaneous
  Country: PL (occurrence: PL)
  Receive Date: 20161101
  Receipt Date: 20161129
  Transmission Date: 20170207
  Serious: Yes (Other)
  Sender: FDA-Public Use
  Company Number: PL-PFIZER INC-2016498233

PATIENT
  Age: 28 Year
  Sex: Male
  Weight: 116 kg

DRUGS (3)
  1. IDARUBICIN HCL [Suspect]
     Active Substance: IDARUBICIN HYDROCHLORIDE
     Indication: SARCOMA
     Dosage: 10 MG/M2, CYCLIC, D 1-3
     Dates: start: 20150924, end: 20150928
  2. CYTARABINE. [Suspect]
     Active Substance: CYTARABINE
     Indication: SARCOMA
     Dosage: 1000 MG/M2, CYCLIC, D 1-5
     Dates: start: 20150924, end: 20150928
  3. RETINOIC ACID [Suspect]
     Active Substance: TRETINOIN
     Indication: SARCOMA
     Dosage: 45 MG/M2, CYCLIC, D (-) 2-2

REACTIONS (3)
  - Escherichia bacteraemia [Unknown]
  - Jugular vein thrombosis [Unknown]
  - Headache [Recovered/Resolved]
